FAERS Safety Report 15656138 (Version 17)
Quarter: 2023Q4

REPORT INFORMATION
  Report Type: Report from Study
  Country: TW (occurrence: None)
  Receive Date: 20181126
  Receipt Date: 20231009
  Transmission Date: 20240110
  Serious: Yes (Death, Life-Threatening, Hospitalization)
  Sender: FDA-Public Use
  Company Number: TW-ROCHE-2207302

PATIENT
  Sex: Male
  Weight: 83 kg

DRUGS (48)
  1. TIRAGOLUMAB [Suspect]
     Active Substance: TIRAGOLUMAB
     Indication: Lung cancer metastatic
     Route: 042
     Dates: start: 20181008
  2. ATEZOLIZUMAB [Suspect]
     Active Substance: ATEZOLIZUMAB
     Indication: Lung cancer metastatic
     Route: 041
     Dates: start: 20181008
  3. PARAMOL (TAIWAN) [Concomitant]
     Indication: Pain
     Route: 048
     Dates: start: 20180919, end: 20181012
  4. PARAMOL (TAIWAN) [Concomitant]
     Indication: Upper respiratory tract infection
     Route: 048
     Dates: start: 20181018
  5. PARAMOL (TAIWAN) [Concomitant]
     Route: 048
     Dates: start: 20181019, end: 20181024
  6. C.B. OINTMENT [Concomitant]
     Indication: Dermatitis allergic
     Route: 061
     Dates: start: 20180925, end: 20181002
  7. DUTASTERIDE [Concomitant]
     Active Substance: DUTASTERIDE
     Indication: Benign prostatic hyperplasia
     Route: 048
  8. DOXAZOSIN MESYLATE [Concomitant]
     Active Substance: DOXAZOSIN MESYLATE
     Indication: Benign prostatic hyperplasia
     Route: 048
  9. LEVOCETIRIZINE [Concomitant]
     Active Substance: LEVOCETIRIZINE
     Indication: Rhinorrhoea
     Route: 048
     Dates: start: 20181001, end: 20181006
  10. LEVOCETIRIZINE [Concomitant]
     Active Substance: LEVOCETIRIZINE
     Route: 048
     Dates: start: 20181008, end: 20181013
  11. AMOXICILLIN\CLAVULANATE POTASSIUM [Concomitant]
     Active Substance: AMOXICILLIN\CLAVULANATE POTASSIUM
     Indication: Upper respiratory tract infection
     Route: 048
     Dates: start: 20181019, end: 20181024
  12. DEXTROMETHORPHAN HYDROBROMIDE [Concomitant]
     Active Substance: DEXTROMETHORPHAN HYDROBROMIDE
     Indication: Upper respiratory tract infection
     Route: 048
     Dates: start: 20181019, end: 20181024
  13. ALLEGRA [Concomitant]
     Active Substance: FEXOFENADINE HYDROCHLORIDE
     Indication: Upper respiratory tract infection
     Route: 048
     Dates: start: 20180919, end: 20181024
  14. XYZAL [Concomitant]
     Active Substance: LEVOCETIRIZINE DIHYDROCHLORIDE
     Indication: Rhinorrhoea
     Route: 048
     Dates: start: 20180929
  15. XYZAL [Concomitant]
     Active Substance: LEVOCETIRIZINE DIHYDROCHLORIDE
     Indication: Rash
     Route: 048
     Dates: start: 20181001, end: 20181006
  16. XYZAL [Concomitant]
     Active Substance: LEVOCETIRIZINE DIHYDROCHLORIDE
     Route: 048
     Dates: start: 20181029, end: 20181119
  17. ACTEIN [Concomitant]
     Indication: Cough
     Route: 048
     Dates: start: 20181030, end: 20181105
  18. ACTEIN [Concomitant]
     Route: 048
     Dates: start: 20181113, end: 20181113
  19. INDOMETHACIN [Concomitant]
     Active Substance: INDOMETHACIN
     Indication: Pain in extremity
     Route: 061
     Dates: start: 20181104, end: 20181112
  20. ALPRAZOLAM [Concomitant]
     Active Substance: ALPRAZOLAM
     Route: 048
     Dates: start: 20181113, end: 20181113
  21. DIPHENHYDRAMINE HYDROCHLORIDE [Concomitant]
     Active Substance: DIPHENHYDRAMINE HYDROCHLORIDE
     Indication: Prophylaxis
     Route: 042
     Dates: start: 20181113
  22. DIPHENHYDRAMINE HYDROCHLORIDE [Concomitant]
     Active Substance: DIPHENHYDRAMINE HYDROCHLORIDE
     Route: 042
     Dates: start: 20181029, end: 20181029
  23. ONEALFA [Concomitant]
     Active Substance: ALFACALCIDOL
     Indication: Hypocalcaemia
     Route: 048
     Dates: start: 20181116
  24. ASCORBIC ACID [Concomitant]
     Active Substance: ASCORBIC ACID
     Indication: Hypocalcaemia
     Route: 042
     Dates: start: 20181114, end: 20181116
  25. CALCIUM CHLORIDE [Concomitant]
     Active Substance: CALCIUM CHLORIDE
     Indication: Hypocalcaemia
     Route: 042
     Dates: start: 20181114, end: 20181114
  26. CALCIUM CHLORIDE [Concomitant]
     Active Substance: CALCIUM CHLORIDE
     Route: 042
     Dates: start: 20181115, end: 20181116
  27. CALCIUM CHLORIDE [Concomitant]
     Active Substance: CALCIUM CHLORIDE
     Route: 042
     Dates: start: 20181120
  28. CHLORHEXIDINE GLUCONATE [Concomitant]
     Active Substance: CHLORHEXIDINE GLUCONATE
     Indication: Infection prophylaxis
     Route: 048
     Dates: start: 20181117
  29. BCG VACCINE [Concomitant]
     Active Substance: BCG VACCINE
     Indication: Sedation
     Route: 042
     Dates: start: 20181118
  30. FENTANYL CITRATE [Concomitant]
     Active Substance: FENTANYL CITRATE
     Indication: Sedation
     Route: 042
     Dates: start: 20181118
  31. ANXICAM [Concomitant]
     Indication: Sedation
     Route: 042
     Dates: start: 20181117, end: 20181117
  32. ANXICAM [Concomitant]
     Route: 042
     Dates: start: 20181119, end: 20181119
  33. DORMICUM [Concomitant]
     Indication: Sedation
     Route: 042
     Dates: start: 20181116, end: 20181116
  34. DORMICUM [Concomitant]
     Route: 042
     Dates: start: 20181120, end: 20181120
  35. DORMICUM [Concomitant]
     Route: 042
     Dates: start: 20181126, end: 20181128
  36. DORMICUM [Concomitant]
     Route: 042
     Dates: start: 20181126, end: 20181128
  37. POTASSIUM CHLORIDE [Concomitant]
     Active Substance: POTASSIUM CHLORIDE
     Indication: Haemodialysis
     Route: 042
     Dates: start: 20181117
  38. POTASSIUM CHLORIDE [Concomitant]
     Active Substance: POTASSIUM CHLORIDE
     Route: 042
     Dates: start: 20181114, end: 20181116
  39. POTASSIUM CHLORIDE [Concomitant]
     Active Substance: POTASSIUM CHLORIDE
     Route: 042
     Dates: start: 20181127, end: 20181128
  40. PROPOFOL [Concomitant]
     Active Substance: PROPOFOL
     Indication: Sedation
     Route: 042
     Dates: start: 20181120
  41. ROLIKAN [Concomitant]
     Indication: Haemodialysis
     Route: 042
     Dates: start: 20181114, end: 20181114
  42. ROLIKAN [Concomitant]
     Route: 042
     Dates: start: 20181127, end: 20181127
  43. NINCORT [Concomitant]
     Indication: Mucosal inflammation
     Route: 061
     Dates: start: 20181118
  44. RELAXIN PORCINE [Concomitant]
     Active Substance: RELAXIN PORCINE
     Indication: Sedation
     Route: 042
     Dates: start: 20181123, end: 20181123
  45. HEPARIN SODIUM [Concomitant]
     Active Substance: HEPARIN SODIUM
     Route: 042
     Dates: start: 20181113, end: 20181113
  46. HEPARIN SODIUM [Concomitant]
     Active Substance: HEPARIN SODIUM
     Route: 042
     Dates: start: 20181114, end: 20181114
  47. HEPARIN SODIUM [Concomitant]
     Active Substance: HEPARIN SODIUM
     Route: 042
     Dates: start: 20181116, end: 20181116
  48. HEPARIN SODIUM [Concomitant]
     Active Substance: HEPARIN SODIUM
     Route: 042
     Dates: start: 20181121, end: 20181121

REACTIONS (3)
  - Epstein-Barr virus infection reactivation [Fatal]
  - Atrial fibrillation [Not Recovered/Not Resolved]
  - Infusion related reaction [Recovered/Resolved]

NARRATIVE: CASE EVENT DATE: 20181029
